FAERS Safety Report 5727804-7 (Version None)
Quarter: 2008Q2

REPORT INFORMATION
  Report Type: 
  Country: None (occurrence: None)
  Receive Date: 20080505
  Receipt Date: 20080423
  Transmission Date: 20081010
  Serious: Yes (Hospitalization, Disabling, Other)
  Sender: FDA-Public Use
  Company Number: US-PFIZER INC-2007042589

PATIENT
  Sex: Male
  Weight: 80 kg

DRUGS (5)
  1. NEURONTIN [Suspect]
     Indication: ARTHRITIS
     Dosage: DAILY DOSE:1800MG
  2. VIAGRA [Suspect]
     Indication: ERECTILE DYSFUNCTION
  3. LAMICTAL [Concomitant]
  4. TOPROL-XL [Concomitant]
  5. CARTIA XT [Concomitant]
     Indication: CARDIAC DISORDER

REACTIONS (10)
  - AMNESIA [None]
  - ATRIAL FIBRILLATION [None]
  - CONFUSIONAL STATE [None]
  - CONVULSION [None]
  - DISABILITY [None]
  - FEMUR FRACTURE [None]
  - KNEE ARTHROPLASTY [None]
  - PALPITATIONS [None]
  - SHOCK [None]
  - UROSEPSIS [None]
